FAERS Safety Report 24436905 (Version 1)
Quarter: 2024Q4

REPORT INFORMATION
  Report Type: Spontaneous
  Country: PL (occurrence: PL)
  Receive Date: 20241015
  Receipt Date: 20241015
  Transmission Date: 20250115
  Serious: Yes (Hospitalization)
  Sender: CHEPLAPHARM
  Company Number: None

PATIENT
  Age: 46 Year
  Sex: Female

DRUGS (6)
  1. CAPECITABINE [Suspect]
     Active Substance: CAPECITABINE
     Indication: Breast cancer recurrent
     Dosage: UNK
  2. ACETAMINOPHEN [Suspect]
     Active Substance: ACETAMINOPHEN
     Indication: Overdose
     Dosage: PROBABLY 5.5 GRAMS, DAILY
  3. ACETAMINOPHEN [Suspect]
     Active Substance: ACETAMINOPHEN
     Indication: Influenza like illness
     Dosage: PROBABLY 5.5 GRAMS, DAILY
  4. ACETAMINOPHEN [Suspect]
     Active Substance: ACETAMINOPHEN
     Indication: Self-medication
     Dosage: PROBABLY 5.5 GRAMS, DAILY
  5. ACETAMINOPHEN\ASCORBIC ACID\PHENIRAMINE MALEATE [Suspect]
     Active Substance: ACETAMINOPHEN\ASCORBIC ACID\PHENIRAMINE MALEATE
     Indication: Influenza like illness
     Dosage: APPROXIMATELY 5.5 G PARACETAMOL DAILY
  6. VINORELBINE [Suspect]
     Active Substance: VINORELBINE TARTRATE
     Indication: Breast cancer recurrent
     Dosage: UNK

REACTIONS (10)
  - Hepatotoxicity [Recovered/Resolved]
  - Thrombocytopenia [Unknown]
  - Hyperbilirubinaemia [Unknown]
  - Asthenia [Unknown]
  - Vomiting [Unknown]
  - Dyspepsia [Unknown]
  - Abdominal pain upper [Unknown]
  - Epstein-Barr virus infection [Unknown]
  - Hepatic steatosis [Recovering/Resolving]
  - Cytomegalovirus infection [Unknown]
